FAERS Safety Report 14845135 (Version 1)
Quarter: 2018Q2

REPORT INFORMATION
  Report Type: Spontaneous
  Country: FR (occurrence: FR)
  Receive Date: 20180504
  Receipt Date: 20180504
  Transmission Date: 20180711
  Serious: Yes (Other)
  Sender: FDA-Public Use
  Company Number: FR-MERCK KGAA-2047148

PATIENT
  Age: 49 Year
  Sex: Female

DRUGS (1)
  1. NOVOTHYROX [Suspect]
     Active Substance: LEVOTHYROXINE SODIUM
     Indication: POST PROCEDURAL HYPOTHYROIDISM

REACTIONS (28)
  - Pain in extremity [Recovering/Resolving]
  - Diarrhoea [Recovering/Resolving]
  - Pain [Recovering/Resolving]
  - Anger [Recovering/Resolving]
  - Depression [Recovering/Resolving]
  - Poor quality sleep [Recovering/Resolving]
  - Headache [Recovering/Resolving]
  - Impaired work ability [Recovering/Resolving]
  - Irritability [Recovering/Resolving]
  - Apathy [Recovering/Resolving]
  - Palpitations [Recovering/Resolving]
  - Social avoidant behaviour [Recovering/Resolving]
  - Hypokinesia [Recovering/Resolving]
  - Feeling abnormal [Recovering/Resolving]
  - Myalgia [Recovering/Resolving]
  - Disturbance in attention [Recovering/Resolving]
  - Mental fatigue [Recovering/Resolving]
  - Fatigue [Recovering/Resolving]
  - Bipolar disorder [Recovering/Resolving]
  - Decreased interest [Recovering/Resolving]
  - Personal relationship issue [Recovering/Resolving]
  - Crying [Recovering/Resolving]
  - Muscle spasms [Recovering/Resolving]
  - Loss of libido [Recovering/Resolving]
  - Asthenia [Recovering/Resolving]
  - Mood altered [Recovering/Resolving]
  - Depressed mood [Recovering/Resolving]
  - Nausea [Recovering/Resolving]

NARRATIVE: CASE EVENT DATE: 2017
